FAERS Safety Report 13943607 (Version 1)
Quarter: 2017Q3

REPORT INFORMATION
  Report Type: Spontaneous
  Country: ZA (occurrence: ZA)
  Receive Date: 20170907
  Receipt Date: 20170907
  Transmission Date: 20171128
  Serious: Yes (Hospitalization)
  Sender: FDA-Public Use
  Company Number: ZA-PURDUE PHARMA-GBR-2017-0047314

PATIENT
  Sex: Female

DRUGS (4)
  1. OXYNORM [Suspect]
     Active Substance: OXYCODONE HYDROCHLORIDE
     Indication: PAIN
     Dosage: 5 MG, Q6H
     Route: 048
  2. LOSARTAN. [Concomitant]
     Active Substance: LOSARTAN
     Indication: HYPERTENSION
     Dosage: 50 MG, DAILY
     Route: 048
  3. TARGINACT [Suspect]
     Active Substance: NALOXONE HYDROCHLORIDE\OXYCODONE HYDROCHLORIDE
     Indication: PAIN
     Dosage: 10/5MG, BID
     Route: 048
  4. EPILIM [Concomitant]
     Active Substance: VALPROATE SODIUM
     Indication: SPINAL CORD DISORDER
     Dosage: 500 MG, BID
     Route: 048

REACTIONS (5)
  - Fall [Recovering/Resolving]
  - Dizziness [Recovering/Resolving]
  - Pelvic fracture [Recovering/Resolving]
  - Hypotension [Recovering/Resolving]
  - Head injury [Recovering/Resolving]
